FAERS Safety Report 8456331-1 (Version None)
Quarter: 2012Q2

REPORT INFORMATION
  Report Type: 
  Country: None (occurrence: None)
  Receive Date: 20120621
  Receipt Date: 20120614
  Transmission Date: 20120825
  Serious: Yes (Hospitalization)
  Sender: FDA-Public Use
  Company Number: US-GLAXOSMITHKLINE-A0874743A

PATIENT
  Age: 70 Year
  Sex: Female

DRUGS (1)
  1. AVANDIA [Suspect]
     Indication: TYPE 2 DIABETES MELLITUS
     Dosage: 4MG PER DAY
     Route: 048
     Dates: start: 20050401, end: 20090301

REACTIONS (8)
  - RENAL FAILURE ACUTE [None]
  - MENTAL DISORDER [None]
  - EMOTIONAL DISORDER [None]
  - CARDIAC FAILURE CONGESTIVE [None]
  - PAIN [None]
  - PROCEDURAL PAIN [None]
  - ACUTE MYOCARDIAL INFARCTION [None]
  - ANHEDONIA [None]
